FAERS Safety Report 11796446 (Version 1)
Quarter: 2015Q4

REPORT INFORMATION
  Report Type: Other
  Country: GB (occurrence: GB)
  Receive Date: 20151203
  Receipt Date: 20151203
  Transmission Date: 20160305
  Serious: Yes (Disabling)
  Sender: FDA-Public Use
  Company Number: GB-MYLANLABS-2015M1041220

PATIENT

DRUGS (4)
  1. QUININE [Concomitant]
     Active Substance: QUININE
     Dosage: 200 MG, QD
     Dates: start: 2013
  2. ANTIEPILEPTICS [Concomitant]
     Active Substance: UNSPECIFIED INGREDIENT
     Dosage: UNK
     Dates: start: 20150311, end: 20151018
  3. ANALGESICS [Concomitant]
     Active Substance: UNSPECIFIED INGREDIENT
     Dosage: AT NIGHT
     Dates: start: 20150311, end: 20151018
  4. LOSARTAN. [Suspect]
     Active Substance: LOSARTAN
     Indication: HYPERTENSION
     Dosage: 50 MG, QD
     Route: 048
     Dates: start: 20150327, end: 20150410

REACTIONS (7)
  - Skin discolouration [Unknown]
  - Sensation of blood flow [Recovered/Resolved with Sequelae]
  - Neuralgia [Recovered/Resolved with Sequelae]
  - Deep vein thrombosis [Recovered/Resolved with Sequelae]
  - Erythema [Recovered/Resolved with Sequelae]
  - Pain [Recovered/Resolved with Sequelae]
  - Skin hypertrophy [Unknown]

NARRATIVE: CASE EVENT DATE: 20150327
